FAERS Safety Report 5742374-5 (Version None)
Quarter: 2008Q2

REPORT INFORMATION
  Report Type: 
  Country: None (occurrence: None)
  Receive Date: 20080515
  Receipt Date: 20080501
  Transmission Date: 20081010
  Serious: Yes (Other)
  Sender: FDA-Public Use
  Company Number: POMP-1000156

PATIENT
  Age: 7 Month
  Sex: Male
  Weight: 9 kg

DRUGS (2)
  1. MYOZYME [Suspect]
     Indication: GLYCOGEN STORAGE DISEASE TYPE II
     Dosage: 20 MG/KG; Q2W, INTRAVENOUS
     Route: 042
     Dates: start: 20071121
  2. VENA (DIPHENHYDRAMINE LAURILSULFATE) [Concomitant]

REACTIONS (1)
  - DRUG HYPERSENSITIVITY [None]
